FAERS Safety Report 8962989 (Version 1)
Quarter: 2012Q4

REPORT INFORMATION
  Report Type: 
  Country: US (occurrence: US)
  Receive Date: 20121214
  Receipt Date: 20121214
  Transmission Date: 20130627
  Serious: Yes (Hospitalization, Other)
  Sender: FDA-Public Use
  Company Number: US-JNJFOC-20121204278

PATIENT

DRUGS (2)
  1. ACETAMINOPHEN [Suspect]
     Route: 048
  2. ACETAMINOPHEN [Suspect]
     Indication: PRODUCT USED FOR UNKNOWN INDICATION
     Route: 048

REACTIONS (8)
  - Respiratory failure [Unknown]
  - Overdose [Unknown]
  - Mental status changes [Unknown]
  - Vital functions abnormal [Unknown]
  - Arrhythmia [Unknown]
  - Respiratory distress [Unknown]
  - Poisoning [None]
  - Poisoning [None]
